FAERS Safety Report 18797813 (Version 1)
Quarter: 2021Q1

REPORT INFORMATION
  Report Type: Report from Study
  Country: US (occurrence: US)
  Receive Date: 20210128
  Receipt Date: 20210128
  Transmission Date: 20210419
  Serious: Yes (Hospitalization)
  Sender: FDA-Public Use
  Company Number: US-ROCHE-2756677

PATIENT
  Age: 70 Year
  Sex: Male
  Weight: 70.7 kg

DRUGS (1)
  1. COBIMETINIB. [Suspect]
     Active Substance: COBIMETINIB
     Indication: HEPATOCELLULAR CARCINOMA
     Dosage: ON 12/JAN/2021, HE RECEIVED THE LAST DOSE OF COBIMETINIB PRIOR TO SERIOUS ADVERSE EVENT ONSET.
     Route: 048
     Dates: start: 20210105

REACTIONS (2)
  - Hyponatraemia [Recovered/Resolved]
  - Confusional state [Recovered/Resolved]

NARRATIVE: CASE EVENT DATE: 20210113
